FAERS Safety Report 6016775-4 (Version None)
Quarter: 2008Q4

REPORT INFORMATION
  Report Type: 
  Country: None (occurrence: None)
  Receive Date: 20081222
  Receipt Date: 20081222
  Transmission Date: 20090506
  Serious: Yes (Hospitalization, Other)
  Sender: FDA-Public Use
  Company Number: A0718749A

PATIENT
  Age: 57 Year
  Sex: Female
  Weight: 88.6 kg

DRUGS (4)
  1. AVANDIA [Suspect]
     Dosage: 8MG PER DAY
     Dates: start: 20000603, end: 20070401
  2. AVANDAMET [Suspect]
     Dates: start: 20000603, end: 20070401
  3. AVANDARYL [Suspect]
     Dates: start: 20000603, end: 20070401
  4. DIABETA [Concomitant]
     Dates: start: 19930101

REACTIONS (3)
  - ANEURYSM [None]
  - CORONARY ARTERY DISEASE [None]
  - MYOCARDIAL INFARCTION [None]
